FAERS Safety Report 14185629 (Version 1)
Quarter: 2017Q4

REPORT INFORMATION
  Report Type: Spontaneous
  Country: US (occurrence: None)
  Receive Date: 20171112
  Receipt Date: 20171112
  Transmission Date: 20180321
  Serious: No
  Sender: FDA-Public Use
  Company Number: None

PATIENT
  Sex: Male

DRUGS (1)
  1. AFINITOR [Suspect]
     Active Substance: EVEROLIMUS
     Indication: CARCINOID TUMOUR
     Route: 048
     Dates: start: 20170920

REACTIONS (6)
  - Swollen tongue [None]
  - Chest discomfort [None]
  - Urticaria [None]
  - Pruritus [None]
  - Pharyngeal oedema [None]
  - Dyspepsia [None]
